FAERS Safety Report 22157274 (Version 1)
Quarter: 2023Q1

REPORT INFORMATION
  Report Type: Spontaneous
  Country: US (occurrence: None)
  Receive Date: 20230329
  Receipt Date: 20230329
  Transmission Date: 20230417
  Serious: No
  Sender: FDA-Public Use
  Company Number: None

PATIENT
  Age: 73 Year
  Sex: Male

DRUGS (13)
  1. TEMOZOLOMIDE [Suspect]
     Active Substance: TEMOZOLOMIDE
     Indication: Malignant neoplasm of pleura
     Dosage: FREQUENCY : AS DIRECTED;?
     Route: 048
  2. ALLOPURINOL [Concomitant]
  3. ASPIRIN [Concomitant]
  4. CATAPRES [Concomitant]
  5. CIALIS [Concomitant]
  6. COZAAR FUROSEMIDE [Concomitant]
  7. INDOMETHACIN [Concomitant]
  8. METFORMIN [Concomitant]
  9. METOPROLOL SUCCINATE ER [Concomitant]
  10. NEXIUM [Concomitant]
     Active Substance: ESOMEPRAZOLE MAGNESIUM
  11. SIMVASTATIN [Concomitant]
  12. SPIRONOLACTONE [Concomitant]
  13. TAMSULOSIN [Concomitant]

REACTIONS (1)
  - Diverticulitis [None]
